FAERS Safety Report 4389256-1 (Version None)
Quarter: 2004Q2

REPORT INFORMATION
  Report Type: 
  Country: None (occurrence: None)
  Receive Date: 20040628
  Receipt Date: 20040615
  Transmission Date: 20050107
  Serious: Yes (Hospitalization)
  Sender: FDA-Public Use
  Company Number: 04P-056-0264618-00

PATIENT
  Age: 47 Year
  Sex: Female
  Weight: 73 kg

DRUGS (2)
  1. TRICOR [Suspect]
     Dosage: 200 MG
     Dates: start: 20030502, end: 20030619
  2. HUMIRA [Suspect]
     Dosage: 40 MG, 1 IN 2 WK
     Dates: start: 20030213, end: 20030507

REACTIONS (1)
  - RHABDOMYOLYSIS [None]
